FAERS Safety Report 9304069 (Version 1)
Quarter: 2013Q2

REPORT INFORMATION
  Report Type: Spontaneous
  Country: CH (occurrence: CH)
  Receive Date: 20130522
  Receipt Date: 20130522
  Transmission Date: 20140414
  Serious: Yes (Death, Hospitalization)
  Sender: FDA-Public Use
  Company Number: CH-UCBSA-068344

PATIENT
  Sex: Male
  Weight: 66 kg

DRUGS (4)
  1. ROTIGOTINE [Suspect]
     Indication: PARKINSON^S DISEASE
     Dosage: IN MORNING
     Route: 061
     Dates: start: 20120911, end: 20120926
  2. ATACAND [Concomitant]
     Indication: HYPERTENSION
     Route: 048
     Dates: start: 201202, end: 20120926
  3. MARCOUMAR [Concomitant]
     Indication: ANTICOAGULANT THERAPY
     Route: 048
     Dates: end: 20120926
  4. STALEVO [Concomitant]
     Indication: PARKINSON^S DISEASE
     Route: 048
     Dates: start: 20120820, end: 20120926

REACTIONS (1)
  - Craniocerebral injury [Fatal]
